FAERS Safety Report 25962180 (Version 1)
Quarter: 2025Q4

REPORT INFORMATION
  Report Type: Spontaneous
  Country: US (occurrence: US)
  Receive Date: 20251027
  Receipt Date: 20251027
  Transmission Date: 20260118
  Serious: Yes (Other)
  Sender: ANI
  Company Number: US-ANIPHARMA-2025-US-047113

PATIENT
  Age: 30 Year
  Sex: Male
  Weight: 96.62 kg

DRUGS (15)
  1. CORTICOTROPIN [Suspect]
     Active Substance: CORTICOTROPIN
     Indication: Nephrotic syndrome
     Dosage: 1 ML TWO TIMES PER WEEK
     Route: 058
     Dates: start: 20250915
  2. CYCLOSPORINE [Concomitant]
     Active Substance: CYCLOSPORINE
  3. METOLAZONE [Concomitant]
     Active Substance: METOLAZONE
  4. NIFEDIPINE [Concomitant]
     Active Substance: NIFEDIPINE
  5. LOSARTAN [Concomitant]
     Active Substance: LOSARTAN
  6. CALCIUM ACETATE [Concomitant]
     Active Substance: CALCIUM ACETATE
  7. VITAMIN B-COMPLEX [Concomitant]
     Active Substance: DEXPANTHENOL\NIACINAMIDE\PYRIDOXINE HYDROCHLORIDE\RIBOFLAVIN 5^-PHOSPHATE SODIUM\THIAMINE HYDROCHLOR
  8. D-3-5 [Concomitant]
  9. ASPIRIN [Concomitant]
     Active Substance: ASPIRIN
  10. TYLENOL EXTRA STRENGTH [Concomitant]
     Active Substance: ACETAMINOPHEN
  11. SODIUM BICARBONATE [Concomitant]
     Active Substance: SODIUM BICARBONATE
  12. VELTASSA [Concomitant]
     Active Substance: PATIROMER
  13. LEVOTHYROXINE SODIUM [Concomitant]
     Active Substance: LEVOTHYROXINE SODIUM
  14. BUMETANIDE [Concomitant]
     Active Substance: BUMETANIDE
  15. ATORVASTATIN CALCIUM [Concomitant]
     Active Substance: ATORVASTATIN CALCIUM

REACTIONS (2)
  - Deep vein thrombosis [Unknown]
  - Contraindicated product administered [Not Recovered/Not Resolved]

NARRATIVE: CASE EVENT DATE: 20250927
